FAERS Safety Report 7635915-4 (Version None)
Quarter: 2011Q3

REPORT INFORMATION
  Report Type: 
  Country: None (occurrence: None)
  Receive Date: 20110726
  Receipt Date: 20110713
  Transmission Date: 20111222
  Serious: Yes (Other)
  Sender: FDA-Public Use
  Company Number: CA-ELI_LILLY_AND_COMPANY-CA201107003339

PATIENT
  Sex: Male

DRUGS (7)
  1. ZYPREXA [Suspect]
     Dosage: 10 MG, QD
  2. ZYPREXA [Suspect]
     Indication: SCHIZOPHRENIA
     Dosage: 5 MG, QD
  3. SYNTHROID [Concomitant]
  4. ZYPREXA [Suspect]
     Dosage: 7.5 MG, QD
  5. CLONAZEPAM [Concomitant]
  6. RISPERDAL [Concomitant]
  7. PAXIL [Concomitant]

REACTIONS (17)
  - HYPERTENSION [None]
  - GINGIVITIS [None]
  - ASTHMA [None]
  - NASOPHARYNGITIS [None]
  - RECTAL HAEMORRHAGE [None]
  - BLOOD GLUCOSE INCREASED [None]
  - DIABETES MELLITUS [None]
  - HYPOGLYCAEMIA [None]
  - WEIGHT INCREASED [None]
  - BLOOD TRIGLYCERIDES INCREASED [None]
  - DERMATITIS CONTACT [None]
  - IRON DEFICIENCY ANAEMIA [None]
  - HYPERKERATOSIS [None]
  - TOOTH EXTRACTION [None]
  - BRONCHITIS [None]
  - BLOOD CHOLESTEROL INCREASED [None]
  - CARDIAC DISORDER [None]
